FAERS Safety Report 23149828 (Version 1)
Quarter: 2023Q4

REPORT INFORMATION
  Report Type: Spontaneous
  Country: US (occurrence: None)
  Receive Date: 20231104
  Receipt Date: 20231104
  Transmission Date: 20240109
  Serious: Yes (Other)
  Sender: FDA-Public Use
  Company Number: None

PATIENT
  Age: 16 Year
  Sex: Female
  Weight: 54.9 kg

DRUGS (7)
  1. METHIMAZOLE [Suspect]
     Active Substance: METHIMAZOLE
     Indication: Graves^ disease
     Dosage: OTHER QUANTITY : 2 CAPSULE(S);?FREQUENCY : AT BEDTIME;?
     Route: 048
     Dates: start: 20230510
  2. VITAMINS [Concomitant]
     Active Substance: VITAMINS
  3. OMEGA 3 [Concomitant]
     Active Substance: CAPSAICIN
  4. VITAMIN K [Concomitant]
     Active Substance: PHYTONADIONE
  5. VITAMIN D NOS [Concomitant]
     Active Substance: VITAMIN D NOS
  6. AMINO ACIDS [Concomitant]
     Active Substance: AMINO ACIDS
  7. IRON [Concomitant]
     Active Substance: IRON

REACTIONS (7)
  - Panic attack [None]
  - Tremor [None]
  - Muscle strain [None]
  - Muscle twitching [None]
  - Feeling jittery [None]
  - Tardive dyskinesia [None]
  - Myalgia [None]

NARRATIVE: CASE EVENT DATE: 20231005
